FAERS Safety Report 21096467 (Version 1)
Quarter: 2022Q3

REPORT INFORMATION
  Report Type: Spontaneous
  Country: US (occurrence: US)
  Receive Date: 20220718
  Receipt Date: 20220718
  Transmission Date: 20221027
  Serious: Yes (Other)
  Sender: FDA-Public Use
  Company Number: US-NORTHSTAR HEALTHCARE HOLDINGS-US-2022NSR000040

PATIENT
  Sex: Male
  Weight: 2.4 kg

DRUGS (10)
  1. BACLOFEN [Suspect]
     Active Substance: BACLOFEN
     Indication: Product used for unknown indication
     Dosage: 30 MG, Q6H, 4 TIMES DAILY
     Route: 064
  2. BACLOFEN [Suspect]
     Active Substance: BACLOFEN
     Dosage: DOL 4, 0.125 MG/KG EVERY SIX HOURS
     Route: 048
  3. BACLOFEN [Suspect]
     Active Substance: BACLOFEN
     Dosage: DOL 5TO7, 0.125 MG/KG EVERY 8 HOURS
     Route: 048
  4. BACLOFEN [Suspect]
     Active Substance: BACLOFEN
     Dosage: DOL 8TO10, 0.125 MG/KG EVERY 12 HOURS
     Route: 048
  5. BACLOFEN [Suspect]
     Active Substance: BACLOFEN
     Dosage: DOL 11TO13, 0.125 MG/KG EVERY 24 HOURS
     Route: 048
  6. DIAZEPAM [Concomitant]
     Active Substance: DIAZEPAM
     Indication: Product used for unknown indication
     Dosage: 2.5 MILLIGRAM, QD AS NEEDED
     Route: 064
  7. OXYBUTYNIN [Concomitant]
     Active Substance: OXYBUTYNIN
     Indication: Product used for unknown indication
     Dosage: 5 MILLIGRAM, QD
     Route: 064
  8. BUPROPION [Concomitant]
     Active Substance: BUPROPION
     Indication: Product used for unknown indication
     Dosage: 300 MILLIGRAM, QD
     Route: 064
  9. ESCITALOPRAM [Concomitant]
     Active Substance: ESCITALOPRAM OXALATE
     Indication: Product used for unknown indication
     Dosage: 10 MILLIGRAM, QD
     Route: 064
  10. MIDODRINE [Concomitant]
     Active Substance: MIDODRINE
     Indication: Product used for unknown indication
     Dosage: 5 MILLIGRAM, QD
     Route: 064

REACTIONS (2)
  - Drug withdrawal syndrome neonatal [Recovered/Resolved]
  - Foetal exposure during pregnancy [Recovered/Resolved]
